FAERS Safety Report 12691961 (Version 1)
Quarter: 2016Q3

REPORT INFORMATION
  Report Type: Spontaneous
  Country: US (occurrence: US)
  Receive Date: 20160827
  Receipt Date: 20160827
  Transmission Date: 20161109
  Serious: No
  Sender: FDA-Public Use
  Company Number: US-AJANTA PHARMA USA INC.-1056805

PATIENT
  Age: 11 Year
  Sex: Male
  Weight: 56.82 kg

DRUGS (3)
  1. TENEX [Concomitant]
     Active Substance: GUANFACINE HYDROCHLORIDE
  2. RISPERIDONE. [Suspect]
     Active Substance: RISPERIDONE
     Indication: BIPOLAR DISORDER
     Route: 048
  3. STRATTERA [Concomitant]
     Active Substance: ATOMOXETINE HYDROCHLORIDE

REACTIONS (1)
  - Gynaecomastia [Not Recovered/Not Resolved]
